FAERS Safety Report 20141826 (Version 2)
Quarter: 2021Q4

REPORT INFORMATION
  Report Type: Report from Study
  Country: FR (occurrence: FR)
  Receive Date: 20211202
  Receipt Date: 20211217
  Transmission Date: 20220303
  Serious: Yes (Life-Threatening, Hospitalization)
  Sender: FDA-Public Use
  Company Number: FR-TEVA-2021-FR-1982127

PATIENT
  Age: 30 Year
  Sex: Male

DRUGS (4)
  1. DIAZEPAM [Suspect]
     Active Substance: DIAZEPAM
     Indication: Product used for unknown indication
     Dosage: CUMULATIVE DOSE OVER THE PAST 12 HOURS: 10MG
     Route: 065
  2. BACLOFEN [Suspect]
     Active Substance: BACLOFEN
     Indication: Quadriplegia
     Dosage: INTRATHECAL PUMP
     Route: 037
  3. CLONAZEPAM [Suspect]
     Active Substance: CLONAZEPAM
     Indication: Product used for unknown indication
     Dosage: CUMULATIVE DOSE OVER THE PAST 12 HOURS: 1MG
     Route: 065
  4. MIDAZOLAM [Suspect]
     Active Substance: MIDAZOLAM
     Indication: Product used for unknown indication
     Dosage: CUMULATIVE DOSE OVER THE PAST 12 HOURS: 10MG
     Route: 065

REACTIONS (3)
  - Drug withdrawal syndrome [Unknown]
  - Coma [Unknown]
  - Electroencephalogram abnormal [Unknown]
